FAERS Safety Report 15072473 (Version 2)
Quarter: 2018Q3

REPORT INFORMATION
  Report Type: Spontaneous
  Country: US (occurrence: US)
  Receive Date: 20180626
  Receipt Date: 20180718
  Transmission Date: 20181010
  Serious: No
  Sender: FDA-Public Use
  Company Number: US-SHIRE-US201822541

PATIENT

DRUGS (1)
  1. VYVANSE [Suspect]
     Active Substance: LISDEXAMFETAMINE DIMESYLATE
     Indication: PRODUCT USED FOR UNKNOWN INDICATION
     Dosage: 20 MG, 1X/DAY:QD
     Route: 048
     Dates: start: 2018

REACTIONS (5)
  - Product physical issue [Unknown]
  - Fear-related avoidance of activities [Unknown]
  - Product quality issue [Unknown]
  - Dizziness [Unknown]
  - Underdose [Unknown]

NARRATIVE: CASE EVENT DATE: 2018
